FAERS Safety Report 16073088 (Version 1)
Quarter: 2019Q1

REPORT INFORMATION
  Report Type: Spontaneous
  Country: GB (occurrence: GB)
  Receive Date: 20190314
  Receipt Date: 20190314
  Transmission Date: 20190418
  Serious: Yes (Other)
  Sender: FDA-Public Use
  Company Number: GB-PFIZER INC-2019107086

PATIENT
  Age: 28 Year
  Sex: Female

DRUGS (1)
  1. IBUPROFEN. [Suspect]
     Active Substance: IBUPROFEN
     Dosage: UNK

REACTIONS (7)
  - Erythema [Unknown]
  - Swelling face [Unknown]
  - Pharyngeal paraesthesia [Recovered/Resolved]
  - Lacrimation increased [Recovered/Resolved]
  - Nasal pruritus [Recovered/Resolved]
  - Ear pruritus [Unknown]
  - Nasal congestion [Unknown]

NARRATIVE: CASE EVENT DATE: 20190201
